FAERS Safety Report 7604852-3 (Version None)
Quarter: 2011Q3

REPORT INFORMATION
  Report Type: 
  Country: None (occurrence: None)
  Receive Date: 20110712
  Receipt Date: 20110705
  Transmission Date: 20111222
  Serious: Yes (Other)
  Sender: FDA-Public Use
  Company Number: US-AMGEN-GBRSP2011034731

PATIENT
  Age: 47 Year
  Sex: Male
  Weight: 113 kg

DRUGS (15)
  1. VITAMIN K TAB [Suspect]
  2. DARBEPOETIN ALFA [Suspect]
  3. GRANISETRON [Suspect]
     Dosage: 1 MG, UNK
     Route: 042
  4. OXYCODONE HCL [Suspect]
     Indication: PAIN
     Dosage: 5 MG, UNK
  5. DEXAMETHASONE [Suspect]
     Dosage: 20 MG, UNK
  6. ERLOTINIB HYDROCHLORIDE [Suspect]
     Dosage: 150 MG, UNK
     Route: 048
  7. WARFARIN SODIUM [Suspect]
     Dosage: 2.5 MG, UNK
  8. ALPRAZOLAM [Suspect]
     Dosage: 0.5 MG, UNK
  9. BEVACIZUMAB [Suspect]
     Dosage: 1497 MG, UNK
  10. CIMETIDINE [Suspect]
     Dosage: 300 MG, UNK
     Route: 042
  11. CARBOPLATIN [Suspect]
     Dosage: 285 MG, UNK
     Route: 042
  12. CITALOPRAM HYDROBROMIDE [Suspect]
     Dosage: 10 MG, UNK
  13. LOPERAMIDE [Suspect]
  14. PACLITAXEL [Suspect]
     Dosage: 130 MG, UNK
     Route: 042
  15. DIPHENHYDRAMINE HCL [Suspect]
     Dosage: 25 MG, UNK

REACTIONS (7)
  - SWELLING [None]
  - INTERNATIONAL NORMALISED RATIO INCREASED [None]
  - HAEMATOMA [None]
  - DRUG INTERACTION [None]
  - RASH [None]
  - CONTUSION [None]
  - DIARRHOEA [None]
